FAERS Safety Report 5418314-5 (Version None)
Quarter: 2007Q3

REPORT INFORMATION
  Report Type: 
  Country: None (occurrence: None)
  Receive Date: 20070817
  Receipt Date: 20070815
  Transmission Date: 20080115
  Serious: Yes (Hospitalization)
  Sender: FDA-Public Use
  Company Number: US-BRISTOL-MYERS SQUIBB COMPANY-13868096

PATIENT
  Sex: Female

DRUGS (9)
  1. ORENCIA [Suspect]
     Dosage: THREE DOSES WERE GIVEN ADMINISTERED TWO WEEKS APART. LAST DOSE WAS GIVEN ON 10-JUL-2007.
  2. PREDNISONE TAB [Concomitant]
  3. TOPROL-XL [Concomitant]
  4. NAPROSYN [Concomitant]
  5. ACIPHEX [Concomitant]
  6. NORVASC [Concomitant]
  7. PROZAC [Concomitant]
  8. METHADONE HCL [Concomitant]
  9. OXYCODONE HCL [Concomitant]

REACTIONS (4)
  - DYSPNOEA [None]
  - NAUSEA [None]
  - RESPIRATORY DISTRESS [None]
  - VOMITING [None]
